FAERS Safety Report 20590627 (Version 2)
Quarter: 2022Q1

REPORT INFORMATION
  Report Type: Spontaneous
  Country: JP (occurrence: JP)
  Receive Date: 20220314
  Receipt Date: 20220328
  Transmission Date: 20220424
  Serious: Yes (Death, Other)
  Sender: FDA-Public Use
  Company Number: JP-ELI_LILLY_AND_COMPANY-JP202201007240

PATIENT
  Age: 86 Year
  Sex: Male

DRUGS (2)
  1. RETEVMO [Suspect]
     Active Substance: SELPERCATINIB
     Indication: Non-small cell lung cancer
     Dosage: 320 MG
     Route: 048
     Dates: start: 20220106, end: 20220201
  2. RETEVMO [Suspect]
     Active Substance: SELPERCATINIB
     Dosage: 40 MG, BID
     Route: 048
     Dates: start: 20220210

REACTIONS (6)
  - Malignant neoplasm progression [Fatal]
  - Diverticulitis intestinal haemorrhagic [Unknown]
  - Thirst [Recovered/Resolved]
  - Oropharyngeal pain [Recovered/Resolved]
  - Mucosal disorder [Recovered/Resolved]
  - Hypertension [Recovered/Resolved]

NARRATIVE: CASE EVENT DATE: 20220113
